FAERS Safety Report 11537203 (Version 1)
Quarter: 2015Q3

REPORT INFORMATION
  Report Type: Other
  Country: US (occurrence: US)
  Receive Date: 20150922
  Receipt Date: 20150922
  Transmission Date: 20151125
  Serious: No
  Sender: FDA-Public Use
  Company Number: US-MIKART, INC.-1042178

PATIENT
  Age: 53 Year
  Sex: Female
  Weight: 80.46 kg

DRUGS (17)
  1. CORTICOSTEROID [Concomitant]
     Active Substance: CORTICOSTEROID NOS
  2. CRANBERRY EXTRACT [Concomitant]
     Active Substance: CRANBERRY JUICE
  3. CYMBALTA [Concomitant]
     Active Substance: DULOXETINE HYDROCHLORIDE
     Dates: start: 2004
  4. LYRICA [Concomitant]
     Active Substance: PREGABALIN
     Dates: start: 2004
  5. AMITRIPTYLINE HYDROCHLORIDE. [Concomitant]
     Active Substance: AMITRIPTYLINE HYDROCHLORIDE
     Dates: start: 2004
  6. KLONOPIN [Concomitant]
     Active Substance: CLONAZEPAM
     Dates: start: 2005
  7. OXYCODONE HYDCHLORIDE [Concomitant]
     Active Substance: OXYCODONE HYDROCHLORIDE
  8. FISH OIL [Concomitant]
     Active Substance: FISH OIL
  9. ECHINACEA [Concomitant]
     Active Substance: ECHINACEA, UNSPECIFIED
  10. DOPAMINE HCL [Concomitant]
     Active Substance: DOPAMINE HYDROCHLORIDE
  11. HYDROCODONE BITARTRATE AND ACETAMINOPHEN [Suspect]
     Active Substance: ACETAMINOPHEN\HYDROCODONE BITARTRATE
     Indication: PAIN
     Route: 048
     Dates: start: 20120912
  12. AMPYRA [Concomitant]
     Active Substance: DALFAMPRIDINE
     Dates: start: 201206
  13. BACLOFEN. [Concomitant]
     Active Substance: BACLOFEN
     Dates: start: 2005
  14. AMANTADINE HCL [Concomitant]
     Active Substance: AMANTADINE HYDROCHLORIDE
     Dates: start: 2006
  15. COPAXONE [Concomitant]
     Active Substance: GLATIRAMER ACETATE
  16. CLONAZEPAM. [Concomitant]
     Active Substance: CLONAZEPAM
  17. NEXIUM [Concomitant]
     Active Substance: ESOMEPRAZOLE MAGNESIUM

REACTIONS (1)
  - Drug ineffective [Unknown]
